FAERS Safety Report 20229820 (Version 1)
Quarter: 2021Q4

REPORT INFORMATION
  Report Type: Spontaneous
  Country: US (occurrence: US)
  Receive Date: 20211226
  Receipt Date: 20211226
  Transmission Date: 20220304
  Serious: No
  Sender: FDA-Public Use
  Company Number: US-ABBVIE-21K-163-4097765-00

PATIENT

DRUGS (3)
  1. SKYRIZI [Suspect]
     Active Substance: RISANKIZUMAB-RZAA
     Indication: Psoriasis
     Route: 058
     Dates: start: 202109
  2. TREMFYA [Concomitant]
     Active Substance: GUSELKUMAB
     Indication: Product used for unknown indication
  3. SILIQ [Concomitant]
     Active Substance: BRODALUMAB
     Indication: Product used for unknown indication

REACTIONS (2)
  - Alopecia [Unknown]
  - Psoriasis [Unknown]

NARRATIVE: CASE EVENT DATE: 20210901
